FAERS Safety Report 5950045-5 (Version None)
Quarter: 2008Q4

REPORT INFORMATION
  Report Type: 
  Country: None (occurrence: None)
  Receive Date: 20081112
  Receipt Date: 20081028
  Transmission Date: 20090506
  Serious: Yes (Hospitalization)
  Sender: FDA-Public Use
  Company Number: FR-ELI_LILLY_AND_COMPANY-FR200809003977

PATIENT
  Age: 84 Year
  Sex: Female

DRUGS (6)
  1. FORTEO [Suspect]
     Indication: OSTEOPOROSIS
     Dosage: 5 UG, DAILY (1/D)
     Route: 058
     Dates: start: 20080402
  2. LEVOTHYROX [Concomitant]
     Dosage: 75 UG, DAILY (1/D)
     Route: 065
  3. IMOVANE [Concomitant]
     Dosage: 1 D/F, DAILY (1/D)
     Route: 065
  4. MICARDIS [Concomitant]
     Dosage: 40 MG, DAILY (1/D)
     Route: 065
  5. ATARAX [Concomitant]
     Dosage: 1 D/F, DAILY (1/D)
     Route: 065
  6. DOLIPRANE [Concomitant]
     Dosage: 6 D/F, DAILY (1/D)
     Route: 065

REACTIONS (1)
  - FEMORAL NECK FRACTURE [None]
